FAERS Safety Report 5698721-6 (Version None)
Quarter: 2008Q2

REPORT INFORMATION
  Report Type: 
  Country: None (occurrence: None)
  Receive Date: 20080408
  Receipt Date: 20070330
  Transmission Date: 20081010
  Serious: No
  Sender: FDA-Public Use
  Company Number: US-BAYER-US-2007-011391

PATIENT
  Sex: Female

DRUGS (1)
  1. CLIMARA [Suspect]
     Route: 062

REACTIONS (4)
  - APPLICATION SITE ULCER [None]
  - CRYING [None]
  - IRRITABILITY [None]
  - VULVOVAGINAL DRYNESS [None]
